FAERS Safety Report 4477448-2 (Version None)
Quarter: 2004Q4

REPORT INFORMATION
  Report Type: 
  Country: None (occurrence: None)
  Receive Date: 20041018
  Receipt Date: 20041011
  Transmission Date: 20050328
  Serious: Yes (Hospitalization)
  Sender: FDA-Public Use
  Company Number: PHRM2004FR03082

PATIENT
  Age: 70 Year
  Sex: Female

DRUGS (6)
  1. TRILEPTAL [Suspect]
     Indication: EPILEPSY
     Route: 048
  2. NEURONTIN [Concomitant]
  3. TENORMIN [Concomitant]
  4. STABLON [Concomitant]
  5. VASTEN [Concomitant]
  6. LOVENOX [Concomitant]

REACTIONS (1)
  - NEUTROPENIA [None]
